FAERS Safety Report 21563237 (Version 1)
Quarter: 2022Q4

REPORT INFORMATION
  Report Type: Spontaneous
  Country: US (occurrence: None)
  Receive Date: 20221107
  Receipt Date: 20221107
  Transmission Date: 20230113
  Serious: No
  Sender: FDA-Public Use
  Company Number: None

PATIENT
  Age: 80 Year
  Sex: Female

DRUGS (13)
  1. LENALIDOMIDE [Suspect]
     Active Substance: LENALIDOMIDE
     Dosage: OTHER FREQUENCY : 3W,1WOFF;?
     Route: 048
  2. ASPIRIN EC [Concomitant]
  3. ATORVASTATIN CALCIUM [Concomitant]
  4. BENADRYL ALLERGY [Concomitant]
  5. DARZALEX [Concomitant]
  6. FLONASE ALLERGY RELIEF [Concomitant]
  7. FUROSEMIDE [Concomitant]
  8. METOPROLOL TARTRATE [Concomitant]
  9. MIRALAX [Concomitant]
  10. PRENISOLONE [Concomitant]
  11. STOOL SOFTNER [Concomitant]
  12. TYLENOL [Concomitant]
  13. VALSARTAN [Concomitant]

REACTIONS (2)
  - Thrombosis [None]
  - Full blood count decreased [None]
